FAERS Safety Report 8089135-2 (Version None)
Quarter: 2012Q1

REPORT INFORMATION
  Report Type: 
  Country: None (occurrence: None)
  Receive Date: 20120128
  Receipt Date: 20110624
  Transmission Date: 20120608
  Serious: No
  Sender: FDA-Public Use
  Company Number: US-ABBOTT-11P-163-0834587-00

PATIENT
  Sex: Female

DRUGS (15)
  1. LOVAZA [Concomitant]
     Indication: SUPPLEMENTATION THERAPY
  2. HUMIRA [Suspect]
     Indication: PSORIASIS
     Route: 058
     Dates: start: 20090201
  3. GABAPENTIN [Concomitant]
     Indication: PAIN
  4. POTASSIUM [Concomitant]
     Indication: PRODUCT USED FOR UNKNOWN INDICATION
  5. OMEPRAZOLE [Concomitant]
     Indication: GASTROOESOPHAGEAL REFLUX DISEASE
  6. CALCIUM CARBONATE [Concomitant]
     Indication: PRODUCT USED FOR UNKNOWN INDICATION
  7. BIOTIN [Concomitant]
     Indication: SUPPLEMENTATION THERAPY
  8. HYDROCODONE BITARTRATE [Concomitant]
     Indication: PAIN
  9. ENALAPRIL [Concomitant]
     Indication: HYPERTENSION
  10. ACTOS [Concomitant]
     Indication: DIABETES MELLITUS
  11. ALLEGRA [Concomitant]
     Indication: SEASONAL ALLERGY
  12. ALPRAZOLAM [Concomitant]
     Indication: ANXIETY
  13. GEMFIBROZIL [Concomitant]
     Indication: BLOOD CHOLESTEROL INCREASED
  14. IBUPROFEN [Concomitant]
     Indication: PRODUCT USED FOR UNKNOWN INDICATION
  15. EFFEXOR [Concomitant]
     Indication: PRODUCT USED FOR UNKNOWN INDICATION

REACTIONS (2)
  - DOUBLE STRANDED DNA ANTIBODY POSITIVE [None]
  - ANTINUCLEAR ANTIBODY POSITIVE [None]
